FAERS Safety Report 14798232 (Version 2)
Quarter: 2018Q4

REPORT INFORMATION
  Report Type: Spontaneous
  Country: ES (occurrence: ES)
  Receive Date: 20180424
  Receipt Date: 20181219
  Transmission Date: 20190204
  Serious: Yes (Other)
  Sender: FDA-Public Use
  Company Number: ES-SUN PHARMACEUTICAL INDUSTRIES LTD-2018RR-170171

PATIENT
  Age: 53 Year
  Sex: Male

DRUGS (8)
  1. DENOSUMAB [Suspect]
     Active Substance: DENOSUMAB
     Indication: PARAGANGLION NEOPLASM
     Dosage: 120 MG, EVERY 28 DAYS
     Route: 065
     Dates: start: 201411
  2. PROPRANOLOL [Interacting]
     Active Substance: PROPRANOLOL HYDROCHLORIDE
     Indication: PARAGANGLION NEOPLASM MALIGNANT
     Dosage: 120 MG, DAILY
     Route: 065
  3. PROPRANOLOL [Interacting]
     Active Substance: PROPRANOLOL HYDROCHLORIDE
     Dosage: 240 MG, DAILY
  4. DOXAZOSIN [Suspect]
     Active Substance: DOXAZOSIN\DOXAZOSIN MESYLATE
     Indication: METASTASIS
     Dosage: 8 MG, DAILY
     Route: 065
  5. BISOPROLOL [Suspect]
     Active Substance: BISOPROLOL
     Indication: HYPERTENSION
     Dosage: 10 MG, DAILY
     Route: 065
  6. LANREOTIDE [Suspect]
     Active Substance: LANREOTIDE
     Dosage: 120 MG EVERY 3 WEEKS
     Route: 065
     Dates: start: 201811
  7. TEMOZOLOMIDE. [Suspect]
     Active Substance: TEMOZOLOMIDE
     Indication: PARAGANGLION NEOPLASM MALIGNANT
     Dosage: 75 MG/M2, FOR 21 DAYS EVERY OTHER 28 DAYS
     Route: 065
     Dates: start: 201605
  8. LANREOTIDE [Suspect]
     Active Substance: LANREOTIDE
     Indication: PARAGANGLION NEOPLASM
     Dosage: 120 MG, EVERY 14 DAYS
     Route: 005
     Dates: end: 201701

REACTIONS (10)
  - Vomiting [Unknown]
  - Hyperglycaemia [Unknown]
  - Thrombocytopenia [Unknown]
  - Product use in unapproved indication [Unknown]
  - Diarrhoea [Unknown]
  - Drug interaction [Unknown]
  - Drug ineffective [Unknown]
  - Nausea [Unknown]
  - Therapeutic response increased [Unknown]
  - Lymphopenia [Unknown]

NARRATIVE: CASE EVENT DATE: 201605
